FAERS Safety Report 25043357 (Version 1)
Quarter: 2025Q1

REPORT INFORMATION
  Report Type: Report from Study
  Country: US (occurrence: US)
  Receive Date: 20250305
  Receipt Date: 20250305
  Transmission Date: 20250408
  Serious: Yes (Other)
  Sender: JOHNSON AND JOHNSON
  Company Number: US-JNJFOC-20250273310

PATIENT
  Age: 48 Year
  Sex: Male

DRUGS (3)
  1. SPRAVATO [Suspect]
     Active Substance: ESKETAMINE
     Indication: Depression
     Route: 045
     Dates: start: 20241220, end: 20250108
  2. SPRAVATO [Suspect]
     Active Substance: ESKETAMINE
     Route: 045
     Dates: start: 20250225, end: 20250225
  3. SPRAVATO [Suspect]
     Active Substance: ESKETAMINE
     Route: 045
     Dates: start: 20250121, end: 20250207

REACTIONS (5)
  - Self-destructive behaviour [Recovered/Resolved]
  - Disturbance in social behaviour [Recovered/Resolved]
  - Crying [Recovered/Resolved]
  - Tremor [Unknown]
  - Dissociation [Recovered/Resolved]

NARRATIVE: CASE EVENT DATE: 20250225
